FAERS Safety Report 4749194-9 (Version None)
Quarter: 2005Q3

REPORT INFORMATION
  Report Type: 
  Country: None (occurrence: None)
  Receive Date: 20050817
  Receipt Date: 20050808
  Transmission Date: 20060218
  Serious: Yes (Other)
  Sender: FDA-Public Use
  Company Number: 200412752GDS

PATIENT
  Age: 53 Year
  Weight: 90 kg

DRUGS (7)
  1. LEVITRA [Suspect]
     Indication: ERECTILE DYSFUNCTION
     Dosage: PRN, ORAL
     Route: 048
     Dates: start: 20040601
  2. LEVITRA [Suspect]
     Indication: ERECTILE DYSFUNCTION
     Dosage: PRN, ORAL
     Route: 048
     Dates: start: 20040701
  3. TRITACE [Concomitant]
  4. DILATREND [Concomitant]
  5. ALDACTONE [Concomitant]
  6. CORDARONE [Concomitant]
  7. SILDENAFIL [Concomitant]

REACTIONS (2)
  - DRUG EFFECT INCREASED [None]
  - HYPOTENSION [None]
